FAERS Safety Report 19642086 (Version 1)
Quarter: 2021Q3

REPORT INFORMATION
  Report Type: Spontaneous
  Country: PL (occurrence: PL)
  Receive Date: 20210730
  Receipt Date: 20210730
  Transmission Date: 20211014
  Serious: Yes (Life-Threatening)
  Sender: FDA-Public Use
  Company Number: PL-TEVA-2021-PL-1936270

PATIENT
  Age: 35 Year
  Sex: Male
  Weight: 118 kg

DRUGS (1)
  1. RISPERIDON [Suspect]
     Active Substance: RISPERIDONE
     Dosage: DOSE: APPROX 30 TABLETS
     Dates: end: 20200811

REACTIONS (2)
  - Toxicity to various agents [Recovering/Resolving]
  - Suicide attempt [Recovering/Resolving]
